FAERS Safety Report 5473463-0 (Version None)
Quarter: 2007Q4

REPORT INFORMATION
  Report Type: 
  Country: None (occurrence: None)
  Receive Date: 20071001
  Receipt Date: 20070921
  Transmission Date: 20080405
  Serious: Yes (Hospitalization)
  Sender: FDA-Public Use
  Company Number: US-SHR-US-2007-008120

PATIENT
  Age: 58 Year
  Sex: Female

DRUGS (12)
  1. BETASERON [Suspect]
     Indication: SECONDARY PROGRESSIVE MULTIPLE SCLEROSIS
     Route: 058
     Dates: start: 19990325, end: 20031122
  2. BETASERON [Suspect]
     Dosage: 8 MIU, EVERY 2D
     Route: 058
     Dates: start: 20051119
  3. LOTREL [Concomitant]
  4. PLAVIX [Concomitant]
  5. DITROPAN                                /USA/ [Concomitant]
  6. ATENOLOL [Concomitant]
  7. ZOCOR [Concomitant]
  8. FERROUS SULFATE TAB [Concomitant]
  9. CARBATROL [Concomitant]
  10. LEXAPRO [Concomitant]
  11. DOXYCYCLINE [Concomitant]
  12. CYNERGEN [Concomitant]

REACTIONS (8)
  - ANAEMIA [None]
  - BLISTER [None]
  - BLOOD SODIUM DECREASED [None]
  - DEHYDRATION [None]
  - DISORIENTATION [None]
  - MULTIPLE SCLEROSIS [None]
  - URINARY TRACT INFECTION [None]
  - VIRAL INFECTION [None]
